FAERS Safety Report 7853438-4 (Version None)
Quarter: 2011Q3

REPORT INFORMATION
  Report Type: 
  Country: None (occurrence: None)
  Receive Date: 20110915
  Receipt Date: 20110617
  Transmission Date: 20111222
  Serious: Yes (Hospitalization)
  Sender: FDA-Public Use
  Company Number: 2011028978

PATIENT
  Age: 22 Year
  Sex: Female
  Weight: 89.2225 kg

DRUGS (15)
  1. PRIVIGEN [Suspect]
     Route: 042
  2. PRIVIGEN [Suspect]
     Indication: ENCEPHALITIS
     Dosage: (90 G QD, 90 G DAILY X 3 DAYS INTRAVENOUS (NOT OTHERWISE SPECIFIED), (10 G), (1-20G), (10 G)
     Route: 042
     Dates: start: 20110601, end: 20110601
  3. PRIVIGEN [Suspect]
     Indication: ENCEPHALITIS
     Dosage: (90 G QD, 90 G DAILY X 3 DAYS INTRAVENOUS (NOT OTHERWISE SPECIFIED), (10 G), (1-20G), (10 G)
     Route: 042
     Dates: start: 20110601, end: 20110601
  4. PRIVIGEN [Suspect]
     Indication: ENCEPHALITIS
     Dosage: (90 G QD, 90 G DAILY X 3 DAYS INTRAVENOUS (NOT OTHERWISE SPECIFIED), (10 G), (1-20G), (10 G)
     Route: 042
     Dates: start: 20110530, end: 20110601
  5. PRIVIGEN [Suspect]
     Indication: ENCEPHALITIS
     Dosage: (90 G QD, 90 G DAILY X 3 DAYS INTRAVENOUS (NOT OTHERWISE SPECIFIED), (10 G), (1-20G), (10 G)
     Route: 042
     Dates: start: 20110530, end: 20110530
  6. PRIVIGEN [Suspect]
     Indication: ENCEPHALITIS
     Dosage: (90 G QD, 90 G DAILY X 3 DAYS INTRAVENOUS (NOT OTHERWISE SPECIFIED), (10 G), (1-20G), (10 G)
     Route: 042
     Dates: start: 20110531, end: 20110531
  7. SULFAMETHOXAZOLE/TRIMETHOPRIM (BACTRIM /00086101/) [Concomitant]
  8. PRIVIGEN [Suspect]
     Route: 042
  9. PROCHLORPERAZINE MALEATE [Concomitant]
  10. PRIVIGEN [Suspect]
     Route: 042
  11. MYCOPHENOLATE MOFETIL [Concomitant]
  12. ONDANSETRON [Concomitant]
  13. PRIVIGEN [Suspect]
     Route: 042
  14. METHYLOPREDNISOLINE (PREDNISOLONE) [Concomitant]
  15. SERTRALINE HYDROCHLORIDE [Concomitant]

REACTIONS (3)
  - ANTI-ERYTHROCYTE ANTIBODY POSITIVE [None]
  - HAEMOGLOBIN DECREASED [None]
  - HAEMOLYTIC ANAEMIA [None]
